FAERS Safety Report 5674486-9 (Version None)
Quarter: 2008Q2

REPORT INFORMATION
  Report Type: 
  Country: None (occurrence: None)
  Receive Date: 20080303
  Receipt Date: 20070420
  Transmission Date: 20081010
  Serious: Yes (Other)
  Sender: FDA-Public Use
  Company Number: MK-6032710

PATIENT
  Age: 47 Year
  Sex: Female

DRUGS (5)
  1. AMNESTEEM [Suspect]
     Indication: ROSACEA
     Dosage: 40 MG;DAILY;ORAL
     Route: 048
     Dates: start: 20060913
  2. ACCUTANE [Suspect]
     Indication: ROSACEA
     Dosage: 40 MG;DAILY;ORAL
     Route: 048
     Dates: start: 20061115, end: 20061218
  3. AMNESTEEM [Suspect]
  4. TRAZODONE HCL [Concomitant]
  5. HYDROCHLOROTHIAZIDE [Concomitant]

REACTIONS (1)
  - BLOOD TRIGLYCERIDES INCREASED [None]
